FAERS Safety Report 10856077 (Version 1)
Quarter: 2015Q1

REPORT INFORMATION
  Report Type: Spontaneous
  Country: US (occurrence: US)
  Receive Date: 20150223
  Receipt Date: 20150223
  Transmission Date: 20150721
  Serious: Yes (Hospitalization, Other)
  Sender: FDA-Public Use
  Company Number: US-BAUSCH-BL-2015-003252

PATIENT
  Sex: Female

DRUGS (1)
  1. ATROPINE SULFATE OPHTHALMIC OINTMENT USP 1% [Suspect]
     Active Substance: ATROPINE SULFATE
     Indication: PRODUCT USED FOR UNKNOWN INDICATION
     Route: 065

REACTIONS (4)
  - Hallucination [Recovered/Resolved]
  - Respiratory tract infection [Unknown]
  - Nightmare [Not Recovered/Not Resolved]
  - Fear [Not Recovered/Not Resolved]
